FAERS Safety Report 14968313 (Version 2)
Quarter: 2018Q2

REPORT INFORMATION
  Report Type: Spontaneous
  Country: US (occurrence: US)
  Receive Date: 20180604
  Receipt Date: 20180623
  Transmission Date: 20180711
  Serious: No
  Sender: FDA-Public Use
  Company Number: US-JNJFOC-20180525126

PATIENT
  Sex: Female

DRUGS (5)
  1. FENTANYL. [Suspect]
     Active Substance: FENTANYL
     Indication: INTERVERTEBRAL DISC PROTRUSION
     Route: 062
     Dates: start: 2018, end: 2018
  2. DICLOFENAC EPOLAMINE [Concomitant]
     Active Substance: DICLOFENAC EPOLAMINE
     Indication: MUSCLE SPASMS
     Route: 065
  3. LORZONE [Concomitant]
     Active Substance: CHLORZOXAZONE
     Indication: MUSCLE SPASMS
     Dosage: HALF PF 375 MG
     Route: 048
  4. LORZONE [Concomitant]
     Active Substance: CHLORZOXAZONE
     Indication: INFLAMMATION
     Dosage: HALF PF 375 MG
     Route: 048
  5. FENTANYL. [Suspect]
     Active Substance: FENTANYL
     Indication: INTERVERTEBRAL DISC PROTRUSION
     Route: 062
     Dates: start: 2018, end: 2018

REACTIONS (9)
  - Urticaria [Not Recovered/Not Resolved]
  - Depression [Not Recovered/Not Resolved]
  - Rash [Not Recovered/Not Resolved]
  - Weight increased [Not Recovered/Not Resolved]
  - Gait inability [Not Recovered/Not Resolved]
  - Joint swelling [Not Recovered/Not Resolved]
  - Breakthrough pain [Unknown]
  - Malaise [Not Recovered/Not Resolved]
  - Wrong technique in product usage process [Unknown]

NARRATIVE: CASE EVENT DATE: 2018
